FAERS Safety Report 17987356 (Version 2)
Quarter: 2021Q4

REPORT INFORMATION
  Report Type: Other
  Country: FR (occurrence: FR)
  Receive Date: 20200707
  Receipt Date: 20211223
  Transmission Date: 20220303
  Serious: Yes (Other)
  Sender: FDA-Public Use
  Company Number: None

PATIENT

DRUGS (4)
  1. TAMOXIFEN [Suspect]
     Active Substance: TAMOXIFEN
     Indication: Breast cancer
     Dosage: UNK
     Route: 048
     Dates: start: 20191019
  2. PACLITAXEL [Concomitant]
     Active Substance: PACLITAXEL
     Indication: Product used for unknown indication
     Route: 065
  3. KETOPROFEN [Concomitant]
     Active Substance: KETOPROFEN
     Indication: Product used for unknown indication
     Route: 065
  4. DULOXETINE [Concomitant]
     Active Substance: DULOXETINE
     Indication: Product used for unknown indication
     Route: 065

REACTIONS (2)
  - Migraine [Not Recovered/Not Resolved]
  - Optic neuropathy [Not Recovered/Not Resolved]

NARRATIVE: CASE EVENT DATE: 20200217
